FAERS Safety Report 9702070 (Version 1)
Quarter: 2013Q4

REPORT INFORMATION
  Report Type: Spontaneous
  Country: US (occurrence: None)
  Receive Date: 20131120
  Receipt Date: 20131120
  Transmission Date: 20140711
  Serious: Yes (Other)
  Sender: FDA-Public Use
  Company Number: 2013-US-003021

PATIENT
  Age: 56 Year
  Sex: Female
  Weight: 54.4 kg

DRUGS (1)
  1. XYREM (SODIUM OXYBATE) ORAL SOLUTION, 500MG/ML [Suspect]
     Indication: NARCOLEPSY
     Route: 048
     Dates: start: 200909, end: 2009

REACTIONS (2)
  - Hip arthroplasty [None]
  - Procedural pain [None]
